FAERS Safety Report 8083337-7 (Version None)
Quarter: 2012Q1

REPORT INFORMATION
  Report Type: 
  Country: None (occurrence: None)
  Receive Date: 20120127
  Receipt Date: 20110110
  Transmission Date: 20120608
  Serious: No
  Sender: FDA-Public Use
  Company Number: US-ABBOTT-11P-163-0697597-00

PATIENT
  Sex: Female
  Weight: 74.91 kg

DRUGS (19)
  1. METHOTREXATE [Concomitant]
     Indication: RHEUMATOID ARTHRITIS
  2. NEURONTIN [Concomitant]
     Indication: FIBROMYALGIA
  3. HUMIRA [Suspect]
     Indication: RHEUMATOID ARTHRITIS
     Dosage: MISSED A DOSE
     Route: 058
  4. HUMIRA [Suspect]
     Route: 058
     Dates: start: 20101216, end: 20101216
  5. AIRBOURNE SUPPLEMENT [Concomitant]
     Indication: COUGH
  6. CYMBALTA [Concomitant]
     Indication: FIBROMYALGIA
  7. SKELAXIN [Concomitant]
     Indication: RHEUMATOID ARTHRITIS
     Dosage: AS NEEDED DURING THE DAY
  8. ESTRADIOL [Concomitant]
     Indication: OESTROGEN REPLACEMENT THERAPY
  9. WELLBUTRIN [Concomitant]
     Indication: DEPRESSION
  10. HYDROCHLOROTHIAZIDE [Concomitant]
     Indication: HYPERTENSION
  11. FLEXERIL [Concomitant]
     Indication: RHEUMATOID ARTHRITIS
     Dosage: AS NEEDED AT HOUR OF SLEEP
  12. AIRBOURNE SUPPLEMENT [Concomitant]
     Indication: NASAL CONGESTION
     Dates: start: 20101201, end: 20101201
  13. SYNTHROID [Concomitant]
     Indication: HYPOTHYROIDISM
  14. KEFLEX [Suspect]
     Indication: SINUSITIS
     Dates: start: 20101223
  15. CYMBALTA [Concomitant]
     Indication: DEPRESSION
  16. TRAZODONE HCL [Concomitant]
     Indication: PAIN
     Dosage: AS NEEDED AT HOUR OF SLEEP
  17. FOLIC ACID [Concomitant]
     Indication: RHEUMATOID ARTHRITIS
  18. CYTOMEL [Concomitant]
     Indication: HYPOTHYROIDISM
  19. KEFLEX [Suspect]
     Indication: BRONCHITIS

REACTIONS (4)
  - NASAL CONGESTION [None]
  - BRONCHITIS [None]
  - SINUSITIS [None]
  - COUGH [None]
